FAERS Safety Report 6349802-5 (Version None)
Quarter: 2009Q3

REPORT INFORMATION
  Report Type: 
  Country: None (occurrence: None)
  Receive Date: 20090911
  Receipt Date: 20090903
  Transmission Date: 20100115
  Serious: Yes (Disabling)
  Sender: FDA-Public Use
  Company Number: JP-MERCK-0908USA01478

PATIENT
  Age: 73 Year
  Sex: Female

DRUGS (2)
  1. FOSAMAX [Suspect]
     Indication: OSTEOPOROSIS
     Route: 048
     Dates: start: 20020101, end: 20080910
  2. ELCITONIN [Suspect]
     Route: 065

REACTIONS (7)
  - ALVEOLAR OSTEITIS [None]
  - BONE DISORDER [None]
  - LOOSE TOOTH [None]
  - PERIODONTAL DISEASE [None]
  - PERIODONTITIS [None]
  - PRIMARY SEQUESTRUM [None]
  - PURULENT DISCHARGE [None]
